FAERS Safety Report 7121299-7 (Version None)
Quarter: 2010Q4

REPORT INFORMATION
  Report Type: 
  Country: None (occurrence: None)
  Receive Date: 20101124
  Receipt Date: 20101115
  Transmission Date: 20110411
  Serious: Yes (Other)
  Sender: FDA-Public Use
  Company Number: PR-MYLANLABS-2010S1012382

PATIENT
  Age: 20 Year
  Sex: Female
  Weight: 51.26 kg

DRUGS (3)
  1. AMNESTEEM [Suspect]
     Indication: ACNE CYSTIC
     Route: 048
     Dates: start: 20100616, end: 20100623
  2. ORAL CONTRACEPTIVE NOS [Concomitant]
     Indication: CONTRACEPTION
  3. CONTRACEPTIVE [Concomitant]
     Indication: POST COITAL CONTRACEPTION

REACTIONS (1)
  - DRUG EXPOSURE DURING PREGNANCY [None]
